FAERS Safety Report 9218243 (Version 1)
Quarter: 2013Q2

REPORT INFORMATION
  Report Type: Spontaneous
  Country: US (occurrence: US)
  Receive Date: 20130408
  Receipt Date: 20130408
  Transmission Date: 20140414
  Serious: No
  Sender: FDA-Public Use
  Company Number: US-009507513-1304USA000244

PATIENT
  Age: 71 Year
  Sex: Female

DRUGS (2)
  1. DULERA [Suspect]
     Indication: ASTHMA
     Dosage: 2 PUFFS TWICE A DAY
     Route: 055
     Dates: start: 201203
  2. SINGULAIR [Suspect]
     Route: 048

REACTIONS (3)
  - Cough [Recovering/Resolving]
  - Drug dose omission [Unknown]
  - Product quality issue [Unknown]
